FAERS Safety Report 10279557 (Version 1)
Quarter: 2014Q3

REPORT INFORMATION
  Report Type: Spontaneous
  Country: FR (occurrence: FR)
  Receive Date: 20140707
  Receipt Date: 20140707
  Transmission Date: 20150326
  Serious: Yes (Hospitalization)
  Sender: FDA-Public Use
  Company Number: FR-JNJFOC-20140616154

PATIENT
  Age: 2 Year
  Sex: Female
  Weight: 9 kg

DRUGS (4)
  1. HALDOL [Suspect]
     Active Substance: HALOPERIDOL
     Indication: ACCIDENTAL EXPOSURE TO PRODUCT
     Route: 048
     Dates: start: 20140201
  2. PARACETAMOL [Suspect]
     Active Substance: ACETAMINOPHEN
     Indication: ACCIDENTAL EXPOSURE TO PRODUCT
     Route: 048
     Dates: start: 20140201
  3. SPASFON [Suspect]
     Active Substance: PHLOROGLUCINOL
     Indication: ACCIDENTAL EXPOSURE TO PRODUCT
     Route: 048
     Dates: start: 20140201
  4. PARACETAMOL [Suspect]
     Active Substance: ACETAMINOPHEN
     Route: 048

REACTIONS (6)
  - Accidental exposure to product [Recovering/Resolving]
  - Hypotonia [Recovering/Resolving]
  - Pyramidal tract syndrome [Recovering/Resolving]
  - Musculoskeletal stiffness [Recovering/Resolving]
  - Confusional state [Recovering/Resolving]
  - Acute disseminated encephalomyelitis [Recovering/Resolving]

NARRATIVE: CASE EVENT DATE: 20140201
